FAERS Safety Report 20995362 (Version 4)
Quarter: 2023Q2

REPORT INFORMATION
  Report Type: Spontaneous
  Country: US (occurrence: US)
  Receive Date: 20220622
  Receipt Date: 20230628
  Transmission Date: 20230721
  Serious: No
  Sender: FDA-Public Use
  Company Number: US-CTI BIOPHARMA-2022US02850

PATIENT

DRUGS (8)
  1. VONJO [Suspect]
     Active Substance: PACRITINIB
     Indication: Myelofibrosis
     Dosage: 100 MG, BID
     Route: 048
     Dates: start: 20220518
  2. VONJO [Suspect]
     Active Substance: PACRITINIB
     Dosage: 200 MILLIGRAM, BID
     Dates: start: 20220518
  3. DIAZEPAM [Concomitant]
     Active Substance: DIAZEPAM
  4. ACETAMINOPHEN\HYDROCODONE [Concomitant]
     Active Substance: ACETAMINOPHEN\HYDROCODONE
  5. LEVOTHYROXINE [Concomitant]
     Active Substance: LEVOTHYROXINE
  6. LISINOPRIL [Concomitant]
     Active Substance: LISINOPRIL
  7. METOPROLOL [Concomitant]
     Active Substance: METOPROLOL
  8. PREDNISONE [Concomitant]
     Active Substance: PREDNISONE

REACTIONS (16)
  - Malaise [Unknown]
  - Hypophagia [Unknown]
  - Weight decreased [Unknown]
  - Night sweats [Unknown]
  - Somnolence [Unknown]
  - Depression [Unknown]
  - Oral disorder [Unknown]
  - Drug ineffective [Unknown]
  - White blood cell count abnormal [Unknown]
  - Joint swelling [Unknown]
  - Palpitations [Unknown]
  - Splenomegaly [Unknown]
  - Anxiety [Unknown]
  - Peripheral swelling [Unknown]
  - Platelet count decreased [Unknown]
  - Epistaxis [Unknown]

NARRATIVE: CASE EVENT DATE: 20220523
